FAERS Safety Report 9471711 (Version 1)
Quarter: 2013Q3

REPORT INFORMATION
  Report Type: Spontaneous
  Country: CA (occurrence: None)
  Receive Date: 20130819
  Receipt Date: 20130819
  Transmission Date: 20140515
  Serious: Yes (Life-Threatening, Other)
  Sender: FDA-Public Use
  Company Number: FK201303228

PATIENT
  Age: 35 Year
  Sex: Male

DRUGS (11)
  1. VANCOMYCIN (MANUFACTURER UNKNOWN) VANCOMYCIN) (VANCOMYCIN) [Suspect]
     Indication: CLOSTRIDIUM DIFFICILE INFECTION
     Route: 048
  2. TACROLIMUS (TACROLIMUS) [Concomitant]
  3. PREDNISON ( (PREDNISONE) [Concomitant]
  4. SALBUTAMOL (SALBUTAMOL) [Concomitant]
  5. BUDESPONIDE W/ TOBRAMYCIN [Concomitant]
  6. DESOLORATADINE (DESLORATADINE) [Concomitant]
  7. PANTOPRAZOLE (PANTOPRAZOLE) [Concomitant]
  8. AZITHROMYCIN (AZITHROMYCIN) [Concomitant]
  9. COTRIMOXAZOLE (BACTRIM /00086101/) [Concomitant]
  10. TIGECYCLINE (TIGECYCLINE) [Concomitant]
  11. METRONIDAZOLE (METRONIDAZOLE) [Concomitant]

REACTIONS (12)
  - Anaphylactic reaction [None]
  - Throat tightness [None]
  - Dyspnoea [None]
  - Tachycardia [None]
  - Erythema [None]
  - Laryngeal oedema [None]
  - Respiratory distress [None]
  - Stridor [None]
  - Oxygen saturation decreased [None]
  - Pyrexia [None]
  - Abdominal pain [None]
  - Ileus [None]
